FAERS Safety Report 17519025 (Version 1)
Quarter: 2020Q1

REPORT INFORMATION
  Report Type: Spontaneous
  Country: US (occurrence: US)
  Receive Date: 20200310
  Receipt Date: 20200310
  Transmission Date: 20200409
  Serious: No
  Sender: FDA-Public Use
  Company Number: US-AUROBINDO-AUR-APL-2020-001751

PATIENT
  Age: 69 Year
  Sex: Female
  Weight: 48.53 kg

DRUGS (2)
  1. SUMATRIPTAN+NAPROXEN SODIUM TABLETS 85MG/500MG [Suspect]
     Active Substance: NAPROXEN SODIUM\SUMATRIPTAN SUCCINATE
     Indication: MIGRAINE
     Dosage: 1 DOSAGE FORM, WHEN NEEDED
     Route: 048
     Dates: start: 201912
  2. SUMATRIPTAN+NAPROXEN SODIUM TABLETS 85MG/500MG [Suspect]
     Active Substance: NAPROXEN SODIUM\SUMATRIPTAN SUCCINATE
     Indication: HEADACHE

REACTIONS (4)
  - Product size issue [Unknown]
  - Product use complaint [Unknown]
  - Foreign body in respiratory tract [Not Recovered/Not Resolved]
  - Weight increased [Not Recovered/Not Resolved]
